FAERS Safety Report 18904623 (Version 1)
Quarter: 2021Q1

REPORT INFORMATION
  Report Type: Spontaneous
  Country: CN (occurrence: CN)
  Receive Date: 20210217
  Receipt Date: 20210217
  Transmission Date: 20210420
  Serious: Yes (Hospitalization, Other)
  Sender: FDA-Public Use
  Company Number: CN-PFIZER INC-2021139023

PATIENT
  Age: 92 Year
  Sex: Female

DRUGS (2)
  1. MEPEM [Suspect]
     Active Substance: MEROPENEM
     Indication: INFECTION
     Dosage: 1 G, 3X/DAY
     Route: 041
     Dates: start: 20210122, end: 20210123
  2. SODIUM CHLORIDE. [Concomitant]
     Active Substance: SODIUM CHLORIDE
     Indication: VEHICLE SOLUTION USE
     Dosage: 50 ML, 3X/DAY
     Route: 041
     Dates: start: 20210122, end: 20210123

REACTIONS (2)
  - Hepatic function abnormal [Recovering/Resolving]
  - Cardiac failure [Unknown]

NARRATIVE: CASE EVENT DATE: 20210122
